FAERS Safety Report 21829661 (Version 1)
Quarter: 2023Q1

REPORT INFORMATION
  Report Type: Spontaneous
  Country: US (occurrence: US)
  Receive Date: 20230106
  Receipt Date: 20230106
  Transmission Date: 20230418
  Serious: Yes (Other)
  Sender: FDA-Public Use
  Company Number: US-MYLANLABS-2022M1142745

PATIENT
  Age: 34 Year
  Sex: Male

DRUGS (18)
  1. GABAPENTIN [Suspect]
     Active Substance: GABAPENTIN
     Indication: Intracranial hypotension
     Dosage: UNK
     Route: 065
  2. GABAPENTIN [Suspect]
     Active Substance: GABAPENTIN
     Indication: Headache
  3. GABAPENTIN [Suspect]
     Active Substance: GABAPENTIN
     Indication: Visual snow syndrome
  4. MAGNESIUM [Suspect]
     Active Substance: MAGNESIUM
     Indication: Intracranial hypotension
     Dosage: UNK
     Route: 065
  5. MAGNESIUM [Suspect]
     Active Substance: MAGNESIUM
     Indication: Headache
  6. MAGNESIUM [Suspect]
     Active Substance: MAGNESIUM
     Indication: Visual snow syndrome
  7. METOPROLOL [Suspect]
     Active Substance: METOPROLOL
     Indication: Intracranial hypotension
     Dosage: UNK
     Route: 065
  8. METOPROLOL [Suspect]
     Active Substance: METOPROLOL
     Indication: Headache
  9. METOPROLOL [Suspect]
     Active Substance: METOPROLOL
     Indication: Visual snow syndrome
  10. AMITRIPTYLINE [Suspect]
     Active Substance: AMITRIPTYLINE
     Indication: Intracranial hypotension
     Dosage: UNK
     Route: 065
  11. AMITRIPTYLINE [Suspect]
     Active Substance: AMITRIPTYLINE
     Indication: Headache
  12. AMITRIPTYLINE [Suspect]
     Active Substance: AMITRIPTYLINE
     Indication: Visual snow syndrome
  13. ACETAMINOPHEN\BUTABARBITAL\CAFFEINE [Suspect]
     Active Substance: ACETAMINOPHEN\BUTABARBITAL\CAFFEINE
     Indication: Intracranial hypotension
     Dosage: UNK
     Route: 065
  14. ACETAMINOPHEN\BUTABARBITAL\CAFFEINE [Suspect]
     Active Substance: ACETAMINOPHEN\BUTABARBITAL\CAFFEINE
     Indication: Visual snow syndrome
  15. ACETAMINOPHEN\BUTABARBITAL\CAFFEINE [Suspect]
     Active Substance: ACETAMINOPHEN\BUTABARBITAL\CAFFEINE
     Indication: Headache
  16. LOSARTAN [Suspect]
     Active Substance: LOSARTAN
     Indication: Intracranial hypotension
     Dosage: UNK
     Route: 065
  17. LOSARTAN [Suspect]
     Active Substance: LOSARTAN
     Indication: Visual snow syndrome
  18. LOSARTAN [Suspect]
     Active Substance: LOSARTAN
     Indication: Headache

REACTIONS (2)
  - Drug ineffective for unapproved indication [Unknown]
  - Off label use [Unknown]
